FAERS Safety Report 5278976-2 (Version None)
Quarter: 2007Q1

REPORT INFORMATION
  Report Type: 
  Country: None (occurrence: None)
  Receive Date: 20070328
  Receipt Date: 20061109
  Transmission Date: 20070707
  Serious: No
  Sender: FDA-Public Use
  Company Number: US-AMGEN-US199726

PATIENT
  Sex: Female

DRUGS (4)
  1. NEULASTA [Suspect]
     Indication: CHEMOTHERAPY
     Route: 065
     Dates: start: 20060908
  2. FLUOROURACIL [Concomitant]
     Route: 065
  3. OXALIPLATIN [Concomitant]
     Route: 065
  4. LEUCOVORIN CALCIUM [Concomitant]
     Route: 065

REACTIONS (5)
  - BACK PAIN [None]
  - BONE PAIN [None]
  - DIZZINESS [None]
  - FATIGUE [None]
  - THROMBOCYTOPENIA [None]
